FAERS Safety Report 9771231 (Version 2)
Quarter: 2014Q1

REPORT INFORMATION
  Report Type: Spontaneous
  Country: DE (occurrence: DE)
  Receive Date: 20131218
  Receipt Date: 20140313
  Transmission Date: 20141002
  Serious: Yes (Hospitalization, Other)
  Sender: FDA-Public Use
  Company Number: DE-WATSON-2013-23536

PATIENT
  Age: 42 Year
  Sex: Female

DRUGS (2)
  1. FIBRISTAL [Suspect]
     Indication: UTERINE LEIOMYOMA
     Dosage: 5 MG, DAILY
     Route: 048
     Dates: start: 20120920, end: 20121220
  2. METFORMIN [Concomitant]
     Indication: PRODUCT USED FOR UNKNOWN INDICATION
     Dosage: UNK, UNKNOWN
     Route: 065

REACTIONS (2)
  - Abdominal pain [Not Recovered/Not Resolved]
  - Salpingo-oophoritis [Not Recovered/Not Resolved]
